FAERS Safety Report 6228270-8 (Version None)
Quarter: 2009Q2

REPORT INFORMATION
  Report Type: 
  Country: None (occurrence: None)
  Receive Date: 20090612
  Receipt Date: 20090603
  Transmission Date: 20091009
  Serious: Yes (Hospitalization)
  Sender: FDA-Public Use
  Company Number: PHHY2009FR22436

PATIENT
  Age: 85 Year
  Sex: Female

DRUGS (3)
  1. EXELON [Suspect]
     Dosage: 4.6 MG
     Dates: start: 20090501
  2. ZOLOFT [Concomitant]
     Dosage: UNK
  3. CORTANCYL [Concomitant]
     Dosage: UNK

REACTIONS (3)
  - COGNITIVE DISORDER [None]
  - FALL [None]
  - GENERAL PHYSICAL HEALTH DETERIORATION [None]
